FAERS Safety Report 6378658-X (Version None)
Quarter: 2009Q3

REPORT INFORMATION
  Report Type: 
  Country: None (occurrence: None)
  Receive Date: 20090928
  Receipt Date: 20090916
  Transmission Date: 20100115
  Serious: Yes (Hospitalization)
  Sender: FDA-Public Use
  Company Number: US-ROCHE-634840

PATIENT
  Sex: Male
  Weight: 115.2 kg

DRUGS (2)
  1. PEG-INTERFERON A-2A (RO 25-8310) [Suspect]
     Indication: HEPATITIS C
     Dosage: NOTE:ONE WEEK OR LESS WORTH OF THERAPY TAKEN (RECEIVED ONE INJECTION)
     Route: 065
     Dates: start: 20090501
  2. RIBAVIRIN [Suspect]
     Indication: HEPATITIS C
     Dosage: NOTE: ONE WEEK OR LESS WORTH OF THERAPY TAKEN; DIVIDED DOSE
     Route: 065
     Dates: start: 20090501

REACTIONS (8)
  - AGGRESSION [None]
  - AMMONIA INCREASED [None]
  - BALANCE DISORDER [None]
  - COMA [None]
  - DISORIENTATION [None]
  - INSOMNIA [None]
  - LETHARGY [None]
  - SPEECH DISORDER [None]
